FAERS Safety Report 5160687-5 (Version None)
Quarter: 2006Q4

REPORT INFORMATION
  Report Type: 
  Country: None (occurrence: None)
  Receive Date: 20060918
  Receipt Date: 20060111
  Transmission Date: 20070319
  Serious: No
  Sender: FDA-Public Use
  Company Number: PHEH2004US07230

PATIENT
  Sex: Female

DRUGS (1)
  1. FEMARA [Suspect]
     Indication: BREAST CANCER
     Dosage: 2. 5  MG, QD, ORAL
     Route: 048
     Dates: start: 20030101

REACTIONS (6)
  - CARPAL TUNNEL SYNDROME [None]
  - DIZZINESS [None]
  - DYSPNOEA [None]
  - HOT FLUSH [None]
  - MYALGIA [None]
  - TREMOR [None]
